FAERS Safety Report 7510111-X (Version None)
Quarter: 2011Q2

REPORT INFORMATION
  Report Type: 
  Country: None (occurrence: None)
  Receive Date: 20110527
  Receipt Date: 20110523
  Transmission Date: 20111010
  Serious: Yes (Other)
  Sender: FDA-Public Use
  Company Number: ES-PFIZER INC-2011101015

PATIENT
  Age: 80 Year
  Sex: Female

DRUGS (9)
  1. ZIPRASIDONE HCL [Suspect]
     Indication: PSYCHOTIC DISORDER
     Dosage: 20 MG, 1-0-1
     Dates: start: 20090101
  2. ZIPRASIDONE HCL [Suspect]
     Dosage: 20 MG, 0-0-1
  3. TRAZODONE HCL [Suspect]
     Indication: DEPRESSION
     Dosage: 10 MG, 1/2-0-1/2
     Dates: start: 20080101
  4. NIFEDIPINE [Concomitant]
     Indication: HYPERTENSION
     Dosage: 30 MG, 1-0-0
     Dates: start: 19950101
  5. ACETYLSALICYLIC ACID [Concomitant]
     Indication: CARDIOVASCULAR EVENT PROPHYLAXIS
     Dosage: 300, 0-1-0
     Dates: start: 20080101
  6. TRAZODONE HCL [Suspect]
     Dosage: 10 MG, 0-0-1
  7. SIMVASTATIN [Concomitant]
     Indication: HYPERCHOLESTEROLAEMIA
     Dosage: 20 MG, 0-0-1
     Dates: start: 19900101
  8. RIVASTIGMINE [Concomitant]
     Indication: VASCULAR DEMENTIA
     Dosage: 6-0-6
     Dates: start: 20070101
  9. LORMETAZEPAM [Concomitant]
     Indication: INSOMNIA
     Dosage: 2 MG, 0-0-1
     Dates: start: 20080101

REACTIONS (2)
  - SYNCOPE [None]
  - ASTHENIA [None]
